FAERS Safety Report 17115220 (Version 1)
Quarter: 2019Q4

REPORT INFORMATION
  Report Type: Spontaneous
  Country: ZA (occurrence: ZA)
  Receive Date: 20191205
  Receipt Date: 20191205
  Transmission Date: 20200122
  Serious: Yes (Other)
  Sender: FDA-Public Use
  Company Number: ZA-PFIZER INC-2019523307

PATIENT
  Age: 42 Year
  Sex: Female

DRUGS (4)
  1. CHLOROQUINE. [Suspect]
     Active Substance: CHLOROQUINE
     Dates: start: 2017
  2. METHOTREXATE SODIUM. [Suspect]
     Active Substance: METHOTREXATE SODIUM
     Dates: start: 2013, end: 2013
  3. PREDNISONE. [Concomitant]
     Active Substance: PREDNISONE
     Dosage: 5 MG, DAILY
     Route: 048
  4. SALAZOPYRIN [Suspect]
     Active Substance: SULFASALAZINE
     Dates: start: 2013

REACTIONS (2)
  - Pulmonary mass [Unknown]
  - Treatment failure [Unknown]
